FAERS Safety Report 4598620-7 (Version None)
Quarter: 2005Q1

REPORT INFORMATION
  Report Type: 
  Country: None (occurrence: None)
  Receive Date: 20050304
  Receipt Date: 20041202
  Transmission Date: 20050727
  Serious: Yes (Hospitalization, Other)
  Sender: FDA-Public Use
  Company Number: US-MERCK-0412USA00647

PATIENT
  Age: 51 Year
  Sex: Female
  Weight: 98 kg

DRUGS (6)
  1. VIOXX [Suspect]
     Indication: ARTHRITIS
     Route: 048
     Dates: start: 20000101, end: 20040930
  2. VIOXX [Suspect]
     Route: 048
     Dates: start: 20040101
  3. VIOXX [Suspect]
     Indication: ARTHRALGIA
     Route: 048
     Dates: start: 20000101, end: 20040930
  4. VIOXX [Suspect]
     Route: 048
     Dates: start: 20040101
  5. BAYER ENTERIC ASPIRIN [Concomitant]
     Route: 065
  6. TENORMIN [Concomitant]
     Route: 065

REACTIONS (58)
  - AMENORRHOEA [None]
  - ANXIETY [None]
  - ARRHYTHMIA [None]
  - ARTHROPATHY [None]
  - BACK PAIN [None]
  - BLOOD GLUCOSE INCREASED [None]
  - BREAST PAIN [None]
  - BURNING SENSATION [None]
  - CEREBROVASCULAR ACCIDENT [None]
  - CEREBROVASCULAR DISORDER [None]
  - CHEST PAIN [None]
  - CREATININE RENAL CLEARANCE DECREASED [None]
  - CRYING [None]
  - DECREASED INTEREST [None]
  - DEPRESSION [None]
  - DRUG INEFFECTIVE [None]
  - DRUG TOLERANCE DECREASED [None]
  - DYSGRAPHIA [None]
  - DYSPEPSIA [None]
  - DYSPNOEA [None]
  - DYSPNOEA EXERTIONAL [None]
  - EMOTIONAL DISTRESS [None]
  - FACIAL PARESIS [None]
  - FATIGUE [None]
  - GASTRITIS [None]
  - GASTROOESOPHAGEAL REFLUX DISEASE [None]
  - GLUCOSE TOLERANCE IMPAIRED [None]
  - HIP DYSPLASIA [None]
  - HOT FLUSH [None]
  - HYPERPARATHYROIDISM [None]
  - HYPERPARATHYROIDISM PRIMARY [None]
  - HYPERTENSION [None]
  - HYPOAESTHESIA [None]
  - INCREASED APPETITE [None]
  - IRRITABILITY [None]
  - MASS [None]
  - MENSTRUATION IRREGULAR [None]
  - METABOLIC SYNDROME [None]
  - MUSCLE SPASMS [None]
  - MUSCULAR WEAKNESS [None]
  - MYOCLONUS [None]
  - NAUSEA [None]
  - NECK PAIN [None]
  - NEOPLASM [None]
  - NERVE COMPRESSION [None]
  - OBESITY [None]
  - OSTEOARTHRITIS [None]
  - PAIN IN EXTREMITY [None]
  - PARATHYROID TUMOUR BENIGN [None]
  - SNORING [None]
  - STRESS [None]
  - TENDERNESS [None]
  - THYROXINE FREE INCREASED [None]
  - TRANSIENT ISCHAEMIC ATTACK [None]
  - TREATMENT NONCOMPLIANCE [None]
  - VARICOSE VEIN [None]
  - VERTEBROBASILAR INSUFFICIENCY [None]
  - WEIGHT INCREASED [None]
